FAERS Safety Report 8413841-0 (Version None)
Quarter: 2012Q2

REPORT INFORMATION
  Report Type: 
  Country: None (occurrence: None)
  Receive Date: 20120605
  Receipt Date: 20120521
  Transmission Date: 20120825
  Serious: No
  Sender: FDA-Public Use
  Company Number: US-ASTRAZENECA-2012SE32902

PATIENT
  Sex: Female

DRUGS (1)
  1. RHINOCORT [Suspect]
     Route: 045

REACTIONS (5)
  - DYSPNOEA [None]
  - SWELLING [None]
  - INSOMNIA [None]
  - INTENTIONAL DRUG MISUSE [None]
  - INFLAMMATION [None]
